FAERS Safety Report 5266536-9 (Version None)
Quarter: 2007Q1

REPORT INFORMATION
  Report Type: 
  Country: None (occurrence: None)
  Receive Date: 20070315
  Receipt Date: 20070305
  Transmission Date: 20070707
  Serious: Yes (Other)
  Sender: FDA-Public Use
  Company Number: FR-PFIZER INC-2007014658

PATIENT
  Sex: Female

DRUGS (1)
  1. CHAMPIX [Suspect]
     Dates: start: 20070219, end: 20070223

REACTIONS (11)
  - ABNORMAL DREAMS [None]
  - AFFECTIVE DISORDER [None]
  - COGNITIVE DISORDER [None]
  - CRYING [None]
  - FEAR [None]
  - HYPERACUSIS [None]
  - INSOMNIA [None]
  - MENSTRUAL DISORDER [None]
  - PANIC ATTACK [None]
  - PROSTRATION [None]
  - TEMPERATURE INTOLERANCE [None]
